FAERS Safety Report 8160052-2 (Version None)
Quarter: 2012Q1

REPORT INFORMATION
  Report Type: 
  Country: None (occurrence: None)
  Receive Date: 20120223
  Receipt Date: 20120208
  Transmission Date: 20120608
  Serious: Yes (Other)
  Sender: FDA-Public Use
  Company Number: TW-JHP PHARMACEUTICALS, LLC-JHP201200106

PATIENT
  Age: 24 Year
  Sex: Female

DRUGS (1)
  1. KETALAR [Suspect]
     Indication: DRUG ABUSE
     Dosage: 3 G, QW
     Route: 045

REACTIONS (2)
  - CYSTITIS NONINFECTIVE [None]
  - BLADDER PERFORATION [None]
